FAERS Safety Report 10299098 (Version 4)
Quarter: 2015Q1

REPORT INFORMATION
  Report Type: Report from Study
  Country: US (occurrence: US)
  Receive Date: 20140711
  Receipt Date: 20150120
  Transmission Date: 20150720
  Serious: Yes (Hospitalization)
  Sender: FDA-Public Use
  Company Number: US-BRISTOL-MYERS SQUIBB COMPANY-21166921

PATIENT
  Age: 42 Year
  Sex: Female
  Weight: 80.4 kg

DRUGS (36)
  1. IPILIMUMAB [Suspect]
     Active Substance: IPILIMUMAB
     Indication: GLIOBLASTOMA
     Dosage: 16JUN14-16JUN14:251MG
     Route: 042
     Dates: start: 20140527, end: 20140616
  2. LOPERAMIDE [Concomitant]
     Active Substance: LOPERAMIDE
     Dates: start: 20140620, end: 20140717
  3. METOPROLOL [Concomitant]
     Active Substance: METOPROLOL
     Dosage: 25 MG, UNK
     Dates: start: 20140527, end: 20140616
  4. PREDNISONE. [Concomitant]
     Active Substance: PREDNISONE
     Dates: start: 20140614, end: 20140620
  5. PREDNISONE. [Concomitant]
     Active Substance: PREDNISONE
     Dates: start: 20140706, end: 20140714
  6. KEPPRA [Concomitant]
     Active Substance: LEVETIRACETAM
  7. ACETAMINOPHEN. [Concomitant]
     Active Substance: ACETAMINOPHEN
     Dates: start: 20140519, end: 20140810
  8. RANITIDINE [Concomitant]
     Active Substance: RANITIDINE\RANITIDINE HYDROCHLORIDE
     Dates: start: 20140630
  9. NIVOLUMAB [Suspect]
     Active Substance: NIVOLUMAB
     Indication: GLIOBLASTOMA
     Dosage: 16JUN14-16JUN14:84MG
     Route: 042
     Dates: start: 20140527, end: 20140616
  10. PREDNISONE. [Concomitant]
     Active Substance: PREDNISONE
     Dosage: 14JUN14-20JUN14:21JUN14-26JUN14-ONGOING
     Dates: start: 20140607, end: 20140613
  11. PREDNISONE. [Concomitant]
     Active Substance: PREDNISONE
     Dates: start: 20140621, end: 20140626
  12. PREDNISONE. [Concomitant]
     Active Substance: PREDNISONE
     Dates: start: 20140701, end: 20140702
  13. PREDNISONE. [Concomitant]
     Active Substance: PREDNISONE
     Dates: start: 20140714, end: 20140728
  14. PREDNISONE. [Concomitant]
     Active Substance: PREDNISONE
     Dates: start: 20140728, end: 20140908
  15. MELATONIN [Concomitant]
     Active Substance: MELATONIN
     Dates: start: 20140605
  16. METHYLPREDNISOLONE. [Concomitant]
     Active Substance: METHYLPREDNISOLONE
     Dates: start: 20140630, end: 20140630
  17. PANTOPRAZOLE [Concomitant]
     Active Substance: PANTOPRAZOLE SODIUM
     Dates: start: 20140630, end: 20140703
  18. HYDRALAZINE [Concomitant]
     Active Substance: HYDRALAZINE HYDROCHLORIDE
     Dates: start: 20140730, end: 20140731
  19. MAGNESIUM OXIDE. [Concomitant]
     Active Substance: MAGNESIUM OXIDE
     Dates: start: 20140728
  20. POTASSIUM CHLORIDE. [Concomitant]
     Active Substance: POTASSIUM CHLORIDE
     Dates: start: 20140730, end: 20140730
  21. LEVETIRACETAM. [Concomitant]
     Active Substance: LEVETIRACETAM
     Dosage: 2000 MG, UNK
     Dates: start: 20140527
  22. METOPROLOL [Concomitant]
     Active Substance: METOPROLOL
     Dates: start: 20140714, end: 20140731
  23. LACTATED RINGERS [Concomitant]
     Active Substance: CALCIUM CHLORIDE\POTASSIUM CHLORIDE\SODIUM CHLORIDE\SODIUM LACTATE
     Dates: start: 20140630, end: 20140703
  24. METOPROLOL [Concomitant]
     Active Substance: METOPROLOL
     Dates: start: 20140626, end: 20140703
  25. PREDNISONE. [Concomitant]
     Active Substance: PREDNISONE
     Dates: start: 20140626, end: 20140630
  26. PREDNISONE. [Concomitant]
     Active Substance: PREDNISONE
     Dates: start: 20140703, end: 20140705
  27. DEXTROSE. [Concomitant]
     Active Substance: DEXTROSE
     Dates: start: 20140630, end: 20140703
  28. DIPHENOXYLATE/ATROPINE [Concomitant]
     Active Substance: ATROPINE\DIPHENOXYLATE
     Dates: start: 20140717, end: 20140816
  29. ONDANSETRON [Concomitant]
     Active Substance: ONDANSETRON
     Dates: start: 20140702, end: 20140728
  30. SYNTHROID [Concomitant]
     Active Substance: LEVOTHYROXINE SODIUM
     Dates: start: 20140626, end: 20141120
  31. AMLODIPINE [Concomitant]
     Active Substance: AMLODIPINE BESYLATE
     Dates: start: 20140730
  32. MULTIVITAMIN                       /00097801/ [Concomitant]
     Active Substance: VITAMINS
     Dates: start: 20140716
  33. SYNTHROID [Concomitant]
     Active Substance: LEVOTHYROXINE SODIUM
     Dosage: 50 ?G, UNK
  34. SOLU-MEDROL [Concomitant]
     Active Substance: METHYLPREDNISOLONE SODIUM SUCCINATE
  35. HYDROCODONE BITARTRATE AND ACETAMINOPHEN [Concomitant]
     Active Substance: ACETAMINOPHEN\HYDROCODONE BITARTRATE
     Dates: start: 20140730, end: 20140730
  36. PHENERGAN [Concomitant]
     Active Substance: PROMETHAZINE HYDROCHLORIDE
     Dates: start: 20140630, end: 20140702

REACTIONS (3)
  - Diarrhoea [Recovered/Resolved]
  - Decreased appetite [Recovered/Resolved]
  - Hypothyroidism [Recovered/Resolved]

NARRATIVE: CASE EVENT DATE: 20140630
